FAERS Safety Report 20631075 (Version 1)
Quarter: 2022Q1

REPORT INFORMATION
  Report Type: Spontaneous
  Country: DE (occurrence: DE)
  Receive Date: 20220324
  Receipt Date: 20220324
  Transmission Date: 20220424
  Serious: Yes (Other)
  Sender: FDA-Public Use
  Company Number: DE-LUPIN PHARMACEUTICALS INC.-2022-04126

PATIENT
  Age: 33 Year
  Sex: Female

DRUGS (5)
  1. ARIPIPRAZOLE [Interacting]
     Active Substance: ARIPIPRAZOLE
     Indication: Drug therapy
     Dosage: 5 MILLIGRAM, QD
     Route: 065
  2. SERTRALINE [Interacting]
     Active Substance: SERTRALINE HYDROCHLORIDE
     Indication: Drug therapy
     Dosage: 100 MILLIGRAM, QD
     Route: 065
  3. ACETYLCYSTEINE [Interacting]
     Active Substance: ACETYLCYSTEINE
     Indication: Dermatillomania
     Dosage: AS A SINGLE DAILY DOSE
     Route: 065
  4. ACETYLCYSTEINE [Interacting]
     Active Substance: ACETYLCYSTEINE
     Indication: Psychiatric symptom
     Dosage: 2400 MILLIGRAM, QD (INCREASED UP TO A TARGET DOSE OF 2400MG DAILY)
     Route: 065
  5. ACETYLCYSTEINE [Interacting]
     Active Substance: ACETYLCYSTEINE
     Indication: Prader-Willi syndrome

REACTIONS (1)
  - Drug interaction [Unknown]
